FAERS Safety Report 22125442 (Version 1)
Quarter: 2023Q1

REPORT INFORMATION
  Report Type: Spontaneous
  Country: US (occurrence: None)
  Receive Date: 20230321
  Receipt Date: 20230321
  Transmission Date: 20230418
  Serious: Yes (Death)
  Sender: FDA-Public Use
  Company Number: None

PATIENT
  Age: 73 Year
  Sex: Male
  Weight: 98.5 kg

DRUGS (22)
  1. REPATHA [Suspect]
     Active Substance: EVOLOCUMAB
     Indication: Hyperlipidaemia
     Dosage: FREQUENCY : EVERY OTHER WEEK;?
     Route: 058
     Dates: start: 20210415, end: 20230201
  2. AMLODIPINE [Concomitant]
     Active Substance: AMLODIPINE BESYLATE
  3. ASPIRIN CHEWABLE TABLETS [Concomitant]
  4. BUPROPION HYDROCHLORIDE [Concomitant]
     Active Substance: BUPROPION HYDROCHLORIDE
  5. CARVEDILOL ER CAPSULES [Concomitant]
  6. CLOPIDOGREL [Concomitant]
     Active Substance: CLOPIDOGREL BISULFATE
  7. DICYCLOMINE CAPSULES [Concomitant]
  8. DIGOXIN TABLETS (WHITE) [Concomitant]
  9. ENTRESTO [Concomitant]
     Active Substance: SACUBITRIL\VALSARTAN
  10. FUROSEMIDE [Concomitant]
     Active Substance: FUROSEMIDE
  11. HUMALOG KWIK PEN INJ [Concomitant]
  12. ISOSORBIDE MONONITRATE ER TABS [Concomitant]
  13. LANTUS SOLOSTAR PEN INJ [Concomitant]
  14. LOPERAMIDE CAPSULES [Concomitant]
  15. METAMUCIL POWDER [Concomitant]
  16. MULTIPLE VITAMIN TABLETS [Concomitant]
  17. NOVOFINE PEN NEEDLES [Concomitant]
  18. ONE TOUCH DELICA LANCETS [Concomitant]
  19. ONE TOUCH ULTRA BLUE TEST ST (NEW) [Concomitant]
  20. RANOLAZINE ER TABLETS [Concomitant]
  21. ROSUVASTATIN [Concomitant]
     Active Substance: ROSUVASTATIN
  22. VITAMIN E CAPSULES [Concomitant]

REACTIONS (1)
  - Death [None]

NARRATIVE: CASE EVENT DATE: 20230201
